FAERS Safety Report 9531602 (Version 1)
Quarter: 2013Q3

REPORT INFORMATION
  Report Type: Spontaneous
  Country: US (occurrence: None)
  Receive Date: 20130917
  Receipt Date: 20130917
  Transmission Date: 20140515
  Serious: Yes (Other)
  Sender: FDA-Public Use
  Company Number: None

PATIENT
  Age: 26 Year
  Sex: Female
  Weight: 51.26 kg

DRUGS (1)
  1. ZONISAMIDE [Suspect]
     Route: 048
     Dates: start: 20130809, end: 20130910

REACTIONS (1)
  - Convulsion [None]
